FAERS Safety Report 8913181 (Version 1)
Quarter: 2012Q4

REPORT INFORMATION
  Report Type: Report from Study
  Country: HK (occurrence: HK)
  Receive Date: 20121116
  Receipt Date: 20121116
  Transmission Date: 20130627
  Serious: Yes (Death, Hospitalization)
  Sender: FDA-Public Use
  Company Number: HK-BAYER-2012-113214

PATIENT
  Age: 67 Year
  Sex: Male
  Weight: 71 kg

DRUGS (16)
  1. REGORAFENIB [Suspect]
     Indication: METASTATIC COLORECTAL CANCER
     Dosage: 160 mg daily
     Route: 048
     Dates: start: 20121108, end: 20121109
  2. PARACETAMOL [Concomitant]
     Indication: SCAR PAIN
     Dosage: 500 mg, PRN
     Route: 048
     Dates: start: 20120827, end: 20121109
  3. AUGMENTIN [Concomitant]
     Indication: INFECTION PROPHYLAXIS
     Dosage: Daily dose 1125 mg
     Route: 048
     Dates: start: 20120806, end: 20120810
  4. AUGMENTIN [Concomitant]
     Indication: INFECTION PROPHYLAXIS
     Dosage: 3.6 g daily dose
     Route: 042
     Dates: start: 20121111, end: 20121114
  5. TRAMADOL [Concomitant]
     Indication: SCAR PAIN
     Dosage: Daily dose 200 mg
     Route: 048
     Dates: start: 20120827, end: 20121109
  6. LISINOPRIL [Concomitant]
     Indication: HYPERTENSION
     Dosage: Daily dose 10 mg
     Route: 048
     Dates: end: 20121109
  7. ATENOLOL [Concomitant]
     Indication: HYPERTENSION
     Dosage: Daily dose 100 mg
     Route: 048
     Dates: end: 20121109
  8. AMLODIPINE [Concomitant]
     Indication: HYPERTENSION
     Dosage: Daily dose 5 mg
     Route: 048
     Dates: start: 20090527, end: 20121109
  9. OXYBUTYNIN HYDROCHLORIDE [Concomitant]
     Indication: BENIGN PROSTATIC HYPERPLASIA
     Dosage: Daily dose 15 mg
     Route: 048
     Dates: start: 20110904, end: 20121109
  10. PRAZOSIN [Concomitant]
     Indication: BENIGN PROSTATIC HYPERPLASIA
     Dosage: Daily dose 1 mg
     Route: 048
     Dates: start: 20121024, end: 20121109
  11. PRAZOSIN [Concomitant]
     Indication: HYPERTENSION
  12. POTASSIUM CHLORIDE [Concomitant]
     Indication: SUPPLEMENTATION THERAPY
     Dosage: Daily dose 600 mg
     Route: 048
     Dates: start: 20090323, end: 20121109
  13. ASPIRIN [Concomitant]
     Indication: CHRONIC ATRIAL FIBRILLATION
     Dosage: Daily dose 80 mg
     Route: 048
     Dates: start: 20111103, end: 20121109
  14. PREDNISOLONE [Concomitant]
     Indication: PREMEDICATION
     Dosage: Daily dose 40 mg
     Route: 048
     Dates: start: 20121024, end: 20121024
  15. SENNA [Concomitant]
     Indication: CONSTIPATION
     Dosage: 150 mg daily dose
     Route: 048
     Dates: start: 20121108, end: 20121109
  16. LACTULOSE [Concomitant]
     Indication: CONSTIPATION
     Dosage: 20 ml daily dose
     Route: 048
     Dates: start: 20121108, end: 20121109

REACTIONS (2)
  - Cardiac arrest [Fatal]
  - Haematuria [Recovered/Resolved]
